FAERS Safety Report 4749988-X (Version None)
Quarter: 2005Q3

REPORT INFORMATION
  Report Type: 
  Country: None (occurrence: None)
  Receive Date: 20050822
  Receipt Date: 20050712
  Transmission Date: 20060218
  Serious: Yes (Hospitalization)
  Sender: FDA-Public Use
  Company Number: US-MERCK-0507USA01636

PATIENT
  Age: 45 Year
  Sex: Female
  Weight: 130 kg

DRUGS (5)
  1. VIOXX [Suspect]
     Indication: BACK PAIN
     Route: 048
     Dates: start: 20020101, end: 20040101
  2. DEPAKOTE [Concomitant]
     Indication: BIPOLAR I DISORDER
     Route: 065
     Dates: start: 19950101
  3. DEPAKOTE [Concomitant]
     Route: 065
     Dates: start: 19950101
  4. KLONOPIN [Concomitant]
     Indication: BIPOLAR I DISORDER
     Route: 065
     Dates: start: 19950101
  5. ULTRAM [Concomitant]
     Route: 065

REACTIONS (1)
  - MYOCARDIAL INFARCTION [None]
